FAERS Safety Report 14925047 (Version 1)
Quarter: 2018Q2

REPORT INFORMATION
  Report Type: Spontaneous
  Country: US (occurrence: US)
  Receive Date: 20180522
  Receipt Date: 20180522
  Transmission Date: 20180711
  Serious: No
  Sender: FDA-Public Use
  Company Number: US-NOVOPROD-541213

PATIENT
  Sex: Male

DRUGS (1)
  1. NORDITROPIN [Suspect]
     Active Substance: SOMATROPIN
     Indication: PRODUCT USED FOR UNKNOWN INDICATION
     Route: 058
     Dates: start: 201509

REACTIONS (4)
  - Anger [Unknown]
  - Aggression [Unknown]
  - Mood swings [Unknown]
  - Abnormal behaviour [Unknown]
